FAERS Safety Report 23449578 (Version 3)
Quarter: 2024Q3

REPORT INFORMATION
  Report Type: Spontaneous
  Country: JP (occurrence: JP)
  Receive Date: 20240129
  Receipt Date: 20240808
  Transmission Date: 20241016
  Serious: Yes (Hospitalization)
  Sender: ROCHE
  Company Number: JP-ROCHE-3496230

PATIENT
  Age: 53 Year
  Sex: Male

DRUGS (1)
  1. TOCILIZUMAB [Suspect]
     Active Substance: TOCILIZUMAB
     Indication: Still^s disease
     Route: 065

REACTIONS (4)
  - Panniculitis [Recovered/Resolved]
  - Toxic shock syndrome streptococcal [Recovered/Resolved]
  - Septic shock [Recovered/Resolved]
  - Disseminated intravascular coagulation [Recovered/Resolved]
